FAERS Safety Report 7827645-0 (Version None)
Quarter: 2011Q4

REPORT INFORMATION
  Report Type: 
  Country: None (occurrence: None)
  Receive Date: 20111020
  Receipt Date: 20111012
  Transmission Date: 20120403
  Serious: Yes (Other)
  Sender: FDA-Public Use
  Company Number: PHHY2011VE91536

PATIENT
  Sex: Female

DRUGS (8)
  1. RISPERIDONE [Concomitant]
  2. CLONAZEPAM [Concomitant]
  3. CLOZAPINE [Suspect]
     Dosage: 300 MG
  4. QUETIAPINE [Concomitant]
  5. DIPYRONE TAB [Concomitant]
  6. SALICYLAMIDE [Concomitant]
  7. CLOZAPINE [Suspect]
     Dosage: 25 MG
  8. CARISOPRODOL [Concomitant]

REACTIONS (3)
  - AMENORRHOEA [None]
  - PSYCHIATRIC DECOMPENSATION [None]
  - BLOOD PROLACTIN INCREASED [None]
